FAERS Safety Report 9166441 (Version 1)
Quarter: 2013Q1

REPORT INFORMATION
  Report Type: Spontaneous
  Country: US (occurrence: US)
  Receive Date: 20130315
  Receipt Date: 20130315
  Transmission Date: 20140127
  Serious: Yes (Other)
  Sender: FDA-Public Use
  Company Number: CHPA2013US004385

PATIENT
  Age: 79 Year
  Sex: Female

DRUGS (2)
  1. BENEFIBER UNKNOWN [Suspect]
     Indication: NUTRITIONAL SUPPLEMENTATION
     Dosage: 1 TSP, QD
     Route: 065
  2. BENEFIBER UNKNOWN [Suspect]
     Dosage: 2 TSP, UNK
     Route: 048

REACTIONS (2)
  - Hiatus hernia [Recovered/Resolved]
  - Underdose [Unknown]
